FAERS Safety Report 5854777-9 (Version None)
Quarter: 2008Q3

REPORT INFORMATION
  Report Type: 
  Country: None (occurrence: None)
  Receive Date: 20080822
  Receipt Date: 20080114
  Transmission Date: 20090109
  Serious: No
  Sender: FDA-Public Use
  Company Number: US-ABBOTT-08P-163-0433223-00

PATIENT
  Sex: Female
  Weight: 78.088 kg

DRUGS (5)
  1. SYNTHROID [Suspect]
     Indication: HYPOTHYROIDISM
     Route: 048
     Dates: start: 20061201, end: 20071101
  2. LANSOPRAZOLE [Concomitant]
     Indication: GASTROOESOPHAGEAL REFLUX DISEASE
     Route: 048
  3. CETIRIZINE HYDROCHLORIDE [Concomitant]
     Indication: HOUSE DUST ALLERGY
     Route: 048
  4. CETIRIZINE HYDROCHLORIDE [Concomitant]
     Indication: MYCOTIC ALLERGY
  5. CETIRIZINE HYDROCHLORIDE [Concomitant]
     Indication: ALLERGY TO PLANTS

REACTIONS (2)
  - ALANINE AMINOTRANSFERASE INCREASED [None]
  - ASPARTATE AMINOTRANSFERASE INCREASED [None]
